FAERS Safety Report 6250046-6 (Version None)
Quarter: 2009Q2

REPORT INFORMATION
  Report Type: 
  Country: None (occurrence: None)
  Receive Date: 20090625
  Receipt Date: 20090612
  Transmission Date: 20091009
  Serious: Yes (Other)
  Sender: FDA-Public Use
  Company Number: 8046101

PATIENT
  Age: 38 Year
  Sex: Male
  Weight: 86 kg

DRUGS (4)
  1. KEPPRA [Suspect]
     Indication: EPILEPSY
     Dosage: 500 MG 2/D PO
     Route: 048
     Dates: start: 20090414, end: 20090424
  2. PHENYTOIN [Concomitant]
  3. FAUSTAN [Concomitant]
  4. LORAZEPAM [Concomitant]

REACTIONS (1)
  - LEUKOPENIA [None]
